FAERS Safety Report 12207232 (Version 1)
Quarter: 2016Q1

REPORT INFORMATION
  Report Type: Spontaneous
  Country: US (occurrence: None)
  Receive Date: 20160323
  Receipt Date: 20160323
  Transmission Date: 20160526
  Serious: No
  Sender: FDA-Public Use
  Company Number: None

PATIENT
  Age: 67 Year
  Sex: Female

DRUGS (23)
  1. SITAGLIPTIN [Concomitant]
     Active Substance: SITAGLIPTIN
  2. WARFARIN [Suspect]
     Active Substance: WARFARIN
     Indication: DEEP VEIN THROMBOSIS
     Route: 048
     Dates: end: 20160202
  3. ASPIRIN. [Concomitant]
     Active Substance: ASPIRIN
  4. ATORVASTATIN [Concomitant]
     Active Substance: ATORVASTATIN
  5. BISACODYL. [Concomitant]
     Active Substance: BISACODYL
  6. FERROUS SULFATE [Concomitant]
     Active Substance: FERROUS SULFATE\FERROUS SULFATE, DRIED
  7. FLUTICASONE [Concomitant]
     Active Substance: FLUTICASONE\FLUTICASONE PROPIONATE
  8. FUROSEMIDE. [Concomitant]
     Active Substance: FUROSEMIDE
  9. LANSOPRAZOLE. [Concomitant]
     Active Substance: LANSOPRAZOLE
  10. METFORMIN [Concomitant]
     Active Substance: METFORMIN HYDROCHLORIDE
  11. AZELASTINE [Concomitant]
     Active Substance: AZELASTINE
  12. ACETAMINOPHEN. [Concomitant]
     Active Substance: ACETAMINOPHEN
  13. INSULIN GLARGINE [Concomitant]
     Active Substance: INSULIN GLARGINE
  14. LOSARTAN. [Concomitant]
     Active Substance: LOSARTAN
  15. NAPROXEN. [Concomitant]
     Active Substance: NAPROXEN
  16. DIPHENHYDRAMINE. [Concomitant]
     Active Substance: DIPHENHYDRAMINE
  17. DOCUSATE [Concomitant]
     Active Substance: DOCUSATE
  18. INSULIN ASPART [Concomitant]
     Active Substance: INSULIN ASPART
  19. MULTIVITAMIN [Concomitant]
     Active Substance: VITAMINS
  20. PREGABALIN. [Concomitant]
     Active Substance: PREGABALIN
  21. SENNA [Concomitant]
     Active Substance: SENNA LEAF\SENNOSIDES\SENNOSIDES A AND B
  22. CALCIUM CARBONATE/VITAMIN D [Concomitant]
     Active Substance: CALCIUM CARBONATE\VITAMIN D
  23. HYDROCHLOROTHIAZIDE. [Concomitant]
     Active Substance: HYDROCHLOROTHIAZIDE

REACTIONS (4)
  - Haemoglobin decreased [None]
  - Faeces discoloured [None]
  - International normalised ratio increased [None]
  - Abdominal wall abscess [None]

NARRATIVE: CASE EVENT DATE: 20160204
